FAERS Safety Report 5985705-3 (Version None)
Quarter: 2008Q4

REPORT INFORMATION
  Report Type: 
  Country: None (occurrence: None)
  Receive Date: 20081208
  Receipt Date: 20080329
  Transmission Date: 20090506
  Serious: No
  Sender: FDA-Public Use
  Company Number: US-AMGEN-KDL272074

PATIENT
  Sex: Female

DRUGS (2)
  1. ENBREL [Suspect]
     Indication: RHEUMATOID ARTHRITIS
     Route: 058
     Dates: start: 19990101
  2. METHOTREXATE [Concomitant]
     Dates: start: 19960101

REACTIONS (6)
  - ARTHRALGIA [None]
  - COUGH [None]
  - EYE IRRITATION [None]
  - HEADACHE [None]
  - OROPHARYNGEAL PAIN [None]
  - SNEEZING [None]
